FAERS Safety Report 8061992-5 (Version None)
Quarter: 2012Q1

REPORT INFORMATION
  Report Type: 
  Country: None (occurrence: None)
  Receive Date: 20120117
  Receipt Date: 20120103
  Transmission Date: 20120608
  Serious: Yes (Death, Other)
  Sender: FDA-Public Use
  Company Number: UTC-014155

PATIENT
  Age: 80 Year
  Sex: Female
  Weight: 56.7 kg

DRUGS (5)
  1. COUMADIN [Concomitant]
  2. TRACLEER [Concomitant]
  3. TYVASO [Suspect]
     Indication: COR PULMONALE CHRONIC
     Dosage: 216 MCG (54 MCG, 4 IN 1 D), INHALATION
     Route: 055
     Dates: start: 20100727
  4. DIGOXIN [Concomitant]
  5. DIURETICS (DIURETICS) [Concomitant]

REACTIONS (1)
  - RENAL CELL CARCINOMA [None]
